FAERS Safety Report 21976541 (Version 2)
Quarter: 2023Q1

REPORT INFORMATION
  Report Type: Spontaneous
  Country: IT (occurrence: IT)
  Receive Date: 20230210
  Receipt Date: 20230306
  Transmission Date: 20230418
  Serious: Yes (Hospitalization)
  Sender: FDA-Public Use
  Company Number: IT-BIOGEN-2023BI01186902

PATIENT
  Age: 48 Year
  Sex: Male

DRUGS (4)
  1. SPINRAZA [Suspect]
     Active Substance: NUSINERSEN
     Indication: Spinal muscular atrophy
     Route: 050
  2. SPINRAZA [Suspect]
     Active Substance: NUSINERSEN
     Dosage: 1 ADMINISTRATION EVERY 4 MONTHS, AFTER LOAD DOSE
     Route: 050
     Dates: start: 201810
  3. SPINRAZA [Suspect]
     Active Substance: NUSINERSEN
     Route: 050
     Dates: start: 20230207
  4. FLECAINIDE [Concomitant]
     Active Substance: FLECAINIDE
     Indication: Product used for unknown indication
     Route: 050
     Dates: start: 20221115

REACTIONS (1)
  - Brugada syndrome [Not Recovered/Not Resolved]

NARRATIVE: CASE EVENT DATE: 20221101
